FAERS Safety Report 5491426-6 (Version None)
Quarter: 2007Q4

REPORT INFORMATION
  Report Type: 
  Country: None (occurrence: None)
  Receive Date: 20071018
  Receipt Date: 20071003
  Transmission Date: 20080405
  Serious: Yes (Life-Threatening, Hospitalization)
  Sender: FDA-Public Use
  Company Number: 2007S1009816

PATIENT
  Age: 66 Year
  Sex: Female
  Weight: 104.9 kg

DRUGS (6)
  1. CITALOPRAM (CITALOPRAM) [Suspect]
     Indication: ANXIETY
     Dosage: 20 MG; ORAL
     Route: 048
     Dates: start: 20070724, end: 20070728
  2. ALENDRONIC ACID [Concomitant]
  3. PREDNISOLONE [Concomitant]
  4. RAMIPRIL [Concomitant]
  5. TEMAZEPAM [Concomitant]
  6. TENORETIC 100 [Concomitant]

REACTIONS (1)
  - HYPONATRAEMIA [None]
